FAERS Safety Report 10458477 (Version 1)
Quarter: 2014Q3

REPORT INFORMATION
  Report Type: Spontaneous
  Country: US (occurrence: None)
  Receive Date: 20140916
  Receipt Date: 20140916
  Transmission Date: 20150326
  Serious: Yes (Hospitalization)
  Sender: FDA-Public Use
  Company Number: None

PATIENT
  Age: 73 Year
  Sex: Female

DRUGS (1)
  1. XENAZINE [Suspect]
     Active Substance: TETRABENAZINE
     Indication: HUNTINGTON^S DISEASE
     Dosage: TAKE (2) 12.5 MG TABLS, PO QAM (1) TABLET MID-DAY, (1) TABLET QPM?
     Route: 048
     Dates: start: 20121010

REACTIONS (2)
  - Hypotension [None]
  - Drug interaction [None]

NARRATIVE: CASE EVENT DATE: 20140908
